FAERS Safety Report 6079395-1 (Version None)
Quarter: 2009Q1

REPORT INFORMATION
  Report Type: 
  Country: None (occurrence: None)
  Receive Date: 20090216
  Receipt Date: 20090203
  Transmission Date: 20090719
  Serious: Yes (Hospitalization)
  Sender: FDA-Public Use
  Company Number: US-ELI_LILLY_AND_COMPANY-US200902000532

PATIENT
  Age: 45 Year
  Sex: Female

DRUGS (7)
  1. FORTEO [Suspect]
     Dates: start: 20080829, end: 20090101
  2. PREDNISONE [Concomitant]
  3. LEVOXYL [Concomitant]
  4. TIAZAC [Concomitant]
  5. XANAX [Concomitant]
  6. ULTRACET [Concomitant]
  7. DDAVP [Concomitant]
     Indication: DIABETES MELLITUS

REACTIONS (3)
  - CHEST PAIN [None]
  - HYPERHIDROSIS [None]
  - NAUSEA [None]
